FAERS Safety Report 17326371 (Version 1)
Quarter: 2020Q1

REPORT INFORMATION
  Report Type: Spontaneous
  Country: US (occurrence: US)
  Receive Date: 20200127
  Receipt Date: 20200127
  Transmission Date: 20200409
  Serious: No
  Sender: FDA-Public Use
  Company Number: US-PFIZER INC-2020033034

PATIENT
  Age: 45 Year
  Sex: Female

DRUGS (1)
  1. SERTRALINE HCL [Suspect]
     Active Substance: SERTRALINE HYDROCHLORIDE
     Indication: GENERALISED ANXIETY DISORDER
     Dosage: UNK, 1X/DAY [BEEN ON 50 MG. OR SHE MAY HAVE BEEN TAKING 100MG AND CUTTING THE TABLET ]
     Route: 048

REACTIONS (1)
  - Rash [Recovered/Resolved]
